FAERS Safety Report 24002523 (Version 2)
Quarter: 2025Q4

REPORT INFORMATION
  Report Type: Report from Study
  Country: EU (occurrence: EU)
  Receive Date: 20240623
  Receipt Date: 20251120
  Transmission Date: 20260118
  Serious: Yes (Hospitalization)
  Sender: ABBVIE
  Company Number: EU-JNJFOC-20240622171

PATIENT
  Age: 64 Year
  Sex: Male
  Weight: 59 kg

DRUGS (10)
  1. DEXAMETHASONE [Suspect]
     Active Substance: DEXAMETHASONE
     Indication: Product used for unknown indication
     Route: 065
  2. AMITRIPTYLINE [Concomitant]
     Active Substance: AMITRIPTYLINE
     Indication: Neuropathy peripheral
     Route: 048
     Dates: start: 20240517
  3. AMLODIPINE [Concomitant]
     Active Substance: AMLODIPINE BESYLATE
     Indication: Essential hypertension
     Route: 048
     Dates: start: 20240519
  4. LENALIDOMIDE [Suspect]
     Active Substance: LENALIDOMIDE
     Indication: Product used for unknown indication
     Route: 065
  5. GABAPENTIN [Concomitant]
     Active Substance: GABAPENTIN
     Indication: Neuropathy peripheral
     Route: 048
     Dates: start: 20240516
  6. ENALAPRIL [Concomitant]
     Active Substance: ENALAPRIL
     Indication: Essential hypertension
     Route: 048
     Dates: start: 20240519
  7. DARZALEX [Suspect]
     Active Substance: DARATUMUMAB
     Indication: Neoplasm
     Dosage: CYCLE: 1 DAY: 1 LAST ADMIN DATE MAY 2024
     Route: 058
     Dates: start: 20240507
  8. DARZALEX [Suspect]
     Active Substance: DARATUMUMAB
     Indication: Neoplasm
     Dosage: LAST ADMIN DATE MAY 2024
     Route: 058
     Dates: start: 20240514
  9. DARZALEX [Suspect]
     Active Substance: DARATUMUMAB
     Indication: Neoplasm
     Dosage: CYCLE: 1 DAY: 14. LAST ADMIN DATE MAY 2024
     Route: 058
     Dates: start: 20240521
  10. DARZALEX [Suspect]
     Active Substance: DARATUMUMAB
     Indication: Neoplasm
     Dosage: CYCLE: 1 DAY: 16. LAST ADMIN DATE MAY 2024
     Route: 058
     Dates: start: 20240523

REACTIONS (2)
  - Skin ulcer [Not Recovered/Not Resolved]
  - Cutaneous vasculitis [Not Recovered/Not Resolved]

NARRATIVE: CASE EVENT DATE: 20240523
